FAERS Safety Report 18153616 (Version 2)
Quarter: 2021Q2

REPORT INFORMATION
  Report Type: Spontaneous
  Country: PT (occurrence: PT)
  Receive Date: 20200816
  Receipt Date: 20210427
  Transmission Date: 20210717
  Serious: Yes (Other)
  Sender: FDA-Public Use
  Company Number: PT-PERRIGO-20PT010620

PATIENT

DRUGS (1)
  1. IBUPROFEN. [Suspect]
     Active Substance: IBUPROFEN
     Indication: HEADACHE
     Dosage: 400 MILLIGRAM DAILY; 7.5 MG/KG/DOSE; DAILY
     Route: 048

REACTIONS (3)
  - Medication overuse headache [Recovering/Resolving]
  - Photophobia [Recovering/Resolving]
  - Headache [Recovering/Resolving]
